FAERS Safety Report 7588880-2 (Version None)
Quarter: 2011Q3

REPORT INFORMATION
  Report Type: 
  Country: None (occurrence: None)
  Receive Date: 20110705
  Receipt Date: 20110616
  Transmission Date: 20111222
  Serious: No
  Sender: FDA-Public Use
  Company Number: US-B.I. PHARMACEUTICALS,INC./RIDGEFIELD-2011-BP-13145BP

PATIENT
  Sex: Female

DRUGS (4)
  1. TYLENOL-500 [Concomitant]
     Indication: PAIN
     Dosage: 325 MG
  2. PRADAXA [Suspect]
     Indication: ATRIAL FIBRILLATION
     Dosage: 300 MG
     Route: 048
     Dates: start: 20110411
  3. MAXZIDE [Concomitant]
     Indication: JOINT SWELLING
  4. MAXZIDE [Concomitant]
     Indication: OEDEMA PERIPHERAL

REACTIONS (9)
  - HEADACHE [None]
  - DIARRHOEA [None]
  - DYSPNOEA [None]
  - HEART RATE IRREGULAR [None]
  - CONTUSION [None]
  - NECK PAIN [None]
  - ABDOMINAL DISCOMFORT [None]
  - DECREASED APPETITE [None]
  - FATIGUE [None]
